FAERS Safety Report 5955557-6 (Version None)
Quarter: 2008Q4

REPORT INFORMATION
  Report Type: 
  Country: None (occurrence: None)
  Receive Date: 20081112
  Receipt Date: 20081028
  Transmission Date: 20090506
  Serious: Yes (Life-Threatening)
  Sender: FDA-Public Use
  Company Number: 2008US003001

PATIENT

DRUGS (3)
  1. PROGRAF [Suspect]
     Indication: RENAL TRANSPLANT
     Dosage: 5 MG, UID/QD, ORAL
     Route: 048
     Dates: start: 20070601, end: 20080901
  2. AZATHIOPRINE [Concomitant]
  3. PREDNISONE [Concomitant]

REACTIONS (2)
  - BIPOLAR DISORDER [None]
  - SUICIDE ATTEMPT [None]
